FAERS Safety Report 22161757 (Version 1)
Quarter: 2023Q1

REPORT INFORMATION
  Report Type: Spontaneous
  Country: FR (occurrence: FR)
  Receive Date: 20230331
  Receipt Date: 20230331
  Transmission Date: 20230417
  Serious: Yes (Other)
  Sender: FDA-Public Use
  Company Number: None

PATIENT
  Age: 96 Year
  Sex: Female
  Weight: 57 kg

DRUGS (3)
  1. MIRTAZAPINE [Suspect]
     Active Substance: MIRTAZAPINE
     Indication: Product used for unknown indication
     Dosage: 3 TABLET, TOTAL OF TABLETS
     Route: 048
     Dates: start: 20221219, end: 20221219
  2. ASTEMIZOLE [Suspect]
     Active Substance: ASTEMIZOLE
     Indication: Product used for unknown indication
     Dosage: 1/2 TABLET
     Route: 048
     Dates: start: 20221219, end: 20221219
  3. BENSERAZIDE HYDROCHLORIDE\LEVODOPA [Suspect]
     Active Substance: BENSERAZIDE HYDROCHLORIDE\LEVODOPA
     Indication: Product used for unknown indication
     Dosage: 125MG +62.5 MG
     Route: 048
     Dates: start: 20221219, end: 20221219

REACTIONS (4)
  - Hallucination [Recovered/Resolved]
  - Somnolence [Recovered/Resolved]
  - Agitation [Recovered/Resolved]
  - Wrong patient received product [Recovered/Resolved]

NARRATIVE: CASE EVENT DATE: 20221219
